FAERS Safety Report 23641561 (Version 1)
Quarter: 2024Q1

REPORT INFORMATION
  Report Type: Spontaneous
  Country: CA (occurrence: CA)
  Receive Date: 20240318
  Receipt Date: 20240318
  Transmission Date: 20240410
  Serious: Yes (Other)
  Sender: FDA-Public Use
  Company Number: CA-HIKMA PHARMACEUTICALS-CA-H14001-24-02018

PATIENT
  Age: 85 Year
  Sex: Female

DRUGS (1)
  1. CEFAZOLIN [Suspect]
     Active Substance: CEFAZOLIN
     Indication: Product used for unknown indication
     Dosage: 2 GRAM
     Route: 042

REACTIONS (4)
  - Discomfort [Recovered/Resolved]
  - Dysarthria [Recovered/Resolved]
  - Glossitis [Recovered/Resolved]
  - Headache [Recovered/Resolved]
